FAERS Safety Report 9615850 (Version 1)
Quarter: 2013Q4

REPORT INFORMATION
  Report Type: Spontaneous
  Country: US (occurrence: US)
  Receive Date: 20131011
  Receipt Date: 20131011
  Transmission Date: 20140711
  Serious: No
  Sender: FDA-Public Use
  Company Number: US-GLAXOSMITHKLINE-A1027273A

PATIENT
  Age: 64 Year
  Sex: Male

DRUGS (3)
  1. JALYN [Suspect]
     Indication: PROSTATOMEGALY
     Dosage: 1CAP PER DAY
     Route: 048
     Dates: start: 201305
  2. JANUVIA [Concomitant]
  3. LISINOPRIL [Concomitant]

REACTIONS (1)
  - Dyspepsia [Recovered/Resolved]
